FAERS Safety Report 8863413 (Version 1)
Quarter: 2012Q4

REPORT INFORMATION
  Report Type: 
  Country: US (occurrence: US)
  Receive Date: 20121024
  Receipt Date: 20121024
  Transmission Date: 20130627
  Serious: No
  Sender: FDA-Public Use
  Company Number: US-AMGEN-USASP2011062727

PATIENT
  Sex: Female
  Weight: 50.79 kg

DRUGS (7)
  1. ENBREL [Suspect]
     Indication: PRODUCT USED FOR UNKNOWN INDICATION
     Dosage: 50 mg, qwk
  2. METHOTREXATE [Concomitant]
     Dosage: 2.5 mg, UNK
  3. ATENOLOL [Concomitant]
     Dosage: 100 mg, UNK
  4. ESTRACE [Concomitant]
     Dosage: 1 mg, UNK
  5. ASPIRIN [Concomitant]
     Dosage: 81 mg, UNK
  6. CALCIUM + VIT D [Concomitant]
  7. LEUCOVORIN /00566701/ [Concomitant]
     Dosage: 200 mg, UNK

REACTIONS (4)
  - Injection site erythema [Unknown]
  - Injection site urticaria [Unknown]
  - Injection site pruritus [Unknown]
  - Injection site reaction [Unknown]
